FAERS Safety Report 7021798 (Version 2)
Quarter: 2018Q4

REPORT INFORMATION
  Report Type: Spontaneous
  Country: JP (occurrence: JP)
  Receive Date: 20090612
  Receipt Date: 20181003
  Transmission Date: 20190205
  Serious: Yes (Other)
  Sender: FDA-Public Use
  Company Number: JP-PFIZER INC-2009222715

PATIENT
  Age: 35 Year
  Sex: Female

DRUGS (2)
  1. MYLIS [Suspect]
     Active Substance: PRASTERONE SODIUM SULFATE ANHYDROUS
     Dosage: FREQUENCY: EVERY WEEK;
     Route: 067
  2. ZITHROMAC 250MG [Suspect]
     Active Substance: AZITHROMYCIN DIHYDRATE
     Indication: CHLAMYDIAL INFECTION
     Dosage: 1000 MG, 1X/DAY
     Route: 048
     Dates: start: 20090512, end: 20090512

REACTIONS (1)
  - Foetal death [Unknown]

NARRATIVE: CASE EVENT DATE: 20090601
